FAERS Safety Report 13745255 (Version 1)
Quarter: 2017Q3

REPORT INFORMATION
  Report Type: Spontaneous
  Country: IT (occurrence: IT)
  Receive Date: 20170712
  Receipt Date: 20170712
  Transmission Date: 20171127
  Serious: Yes (Other)
  Sender: FDA-Public Use
  Company Number: IT-ELI_LILLY_AND_COMPANY-IT201707001776

PATIENT
  Age: 42 Year
  Sex: Male
  Weight: 71 kg

DRUGS (4)
  1. ERBITUX [Suspect]
     Active Substance: CETUXIMAB
     Indication: RECTAL ADENOCARCINOMA
     Dosage: 330 MG, UNKNOWN
     Route: 042
     Dates: start: 20170126
  2. FLUOROURACILE [Concomitant]
     Active Substance: FLUOROURACIL
     Dosage: 3200 MG, UNK
     Route: 041
  3. FLUOROURACILE [Concomitant]
     Active Substance: FLUOROURACIL
     Indication: RECTAL ADENOCARCINOMA
     Dosage: 540 MG, UNK
     Route: 040
  4. LEVOFOLINIC ACID [Concomitant]
     Active Substance: LEVOLEUCOVORIN
     Indication: RECTAL ADENOCARCINOMA
     Dosage: 270 MG, UNK

REACTIONS (1)
  - Thrombocytopenia [Recovering/Resolving]

NARRATIVE: CASE EVENT DATE: 20170207
